FAERS Safety Report 9493944 (Version 2)
Quarter: 2013Q4

REPORT INFORMATION
  Report Type: Spontaneous
  Country: US (occurrence: US)
  Receive Date: 20130903
  Receipt Date: 20131004
  Transmission Date: 20140711
  Serious: No
  Sender: FDA-Public Use
  Company Number: US-BIOGENIDEC-2013BI080378

PATIENT
  Age: 40 Year
  Sex: Female
  Weight: 63 kg

DRUGS (8)
  1. TYSABRI [Suspect]
     Indication: MULTIPLE SCLEROSIS
     Route: 042
     Dates: start: 20080611, end: 20130822
  2. FLUCONAZOLE [Concomitant]
  3. VALIUM [Concomitant]
  4. ECONAZOLE NITRATE [Concomitant]
  5. BUTALBITAL-APAP-CAFFEINE [Concomitant]
     Route: 048
     Dates: start: 20101220
  6. DIAZEPAM [Concomitant]
     Route: 048
     Dates: start: 20110302
  7. LEVOTHYROXINE SODIUM [Concomitant]
     Route: 048
  8. HYDROXYZINE HCL [Concomitant]
     Route: 048
     Dates: start: 20130822

REACTIONS (22)
  - White blood cell count increased [Unknown]
  - Neutrophil count increased [Unknown]
  - Blood thyroid stimulating hormone decreased [Unknown]
  - Body tinea [Unknown]
  - Erythema [Unknown]
  - Rhinitis allergic [Not Recovered/Not Resolved]
  - Cervical dysplasia [Not Recovered/Not Resolved]
  - Migraine with aura [Not Recovered/Not Resolved]
  - Hypothyroidism [Not Recovered/Not Resolved]
  - Neck pain [Not Recovered/Not Resolved]
  - Urinary tract disorder [Not Recovered/Not Resolved]
  - Back pain [Unknown]
  - Abdominal pain [Unknown]
  - Musculoskeletal pain [Unknown]
  - Nausea [Unknown]
  - Vomiting [Unknown]
  - Eosinophil count increased [Unknown]
  - Rash [Not Recovered/Not Resolved]
  - Tension headache [Not Recovered/Not Resolved]
  - Dermatitis [Not Recovered/Not Resolved]
  - Vulvovaginal candidiasis [Not Recovered/Not Resolved]
  - Pruritus [Unknown]
